FAERS Safety Report 11692307 (Version 1)
Quarter: 2015Q4

REPORT INFORMATION
  Report Type: Report from Study
  Country: US (occurrence: US)
  Receive Date: 20151103
  Receipt Date: 20151103
  Transmission Date: 20160304
  Serious: Yes (Other)
  Sender: FDA-Public Use
  Company Number: US-AMGEN-USASL2015113657

PATIENT
  Age: 26 Year
  Sex: Female

DRUGS (1)
  1. ENBREL [Suspect]
     Active Substance: ETANERCEPT
     Indication: PSORIATIC ARTHROPATHY
     Dosage: 50 MG, QWK
     Route: 065
     Dates: start: 201504

REACTIONS (10)
  - CSF pressure abnormal [Unknown]
  - Tuberculin test positive [Unknown]
  - Disease progression [Unknown]
  - Joint injury [Unknown]
  - Loss of consciousness [Unknown]
  - Arnold-Chiari malformation [Unknown]
  - Adverse drug reaction [Unknown]
  - Malaise [Unknown]
  - Multiple fractures [Unknown]
  - Foot fracture [Unknown]

NARRATIVE: CASE EVENT DATE: 2015
